FAERS Safety Report 5091159-4 (Version None)
Quarter: 2006Q3

REPORT INFORMATION
  Report Type: 
  Country: None (occurrence: None)
  Receive Date: 20060829
  Receipt Date: 20060814
  Transmission Date: 20061208
  Serious: Yes (Hospitalization, Other)
  Sender: FDA-Public Use
  Company Number: PHBS2006ZA12296

PATIENT
  Age: 54 Year
  Sex: Female

DRUGS (5)
  1. ZELNORM [Suspect]
     Dosage: 6 MG, BID
     Route: 048
  2. ELTROXIN [Concomitant]
  3. LAMICTAL [Concomitant]
  4. EPILIM [Concomitant]
  5. MOVICOL [Concomitant]

REACTIONS (5)
  - BEDRIDDEN [None]
  - CIRCULATORY COLLAPSE [None]
  - CONSTIPATION [None]
  - POLLAKIURIA [None]
  - PRURITUS [None]
